FAERS Safety Report 9614627 (Version 1)
Quarter: 2013Q4

REPORT INFORMATION
  Report Type: Report from Study
  Country: NL (occurrence: NL)
  Receive Date: 20131011
  Receipt Date: 20131011
  Transmission Date: 20140711
  Serious: Yes (Hospitalization)
  Sender: FDA-Public Use
  Company Number: NL-JNJFOC-20131001440

PATIENT
  Age: 8 Decade
  Sex: Male

DRUGS (6)
  1. ABIRATERONE [Suspect]
     Indication: PROSTATE CANCER
     Route: 048
     Dates: start: 20111206
  2. CALCICHEW [Concomitant]
  3. PREDNISONE [Concomitant]
  4. AVODART [Concomitant]
  5. PANTOZOL [Concomitant]
  6. URSOCHOL [Concomitant]

REACTIONS (3)
  - Dyspnoea [Unknown]
  - Pneumonia [Unknown]
  - Pulmonary embolism [Unknown]
